APPROVED DRUG PRODUCT: LEUCOVORIN CALCIUM
Active Ingredient: LEUCOVORIN CALCIUM
Strength: EQ 350MG BASE/VIAL
Dosage Form/Route: INJECTABLE;INJECTION
Application: A218200 | Product #001 | TE Code: AP
Applicant: GLAND PHARMA LTD
Approved: Nov 12, 2025 | RLD: No | RS: No | Type: RX